FAERS Safety Report 24539944 (Version 1)
Quarter: 2024Q4

REPORT INFORMATION
  Report Type: Spontaneous
  Country: US (occurrence: US)
  Receive Date: 20241023
  Receipt Date: 20241023
  Transmission Date: 20250115
  Serious: Yes (Disabling)
  Sender: ALEXION PHARMACEUTICALS
  Company Number: US-AstraZeneca-CH-00727051A

PATIENT

DRUGS (10)
  1. BYDUREON BCISE [Suspect]
     Active Substance: EXENATIDE
     Indication: Diabetes mellitus
     Dosage: UNK
  2. BYDUREON BCISE [Suspect]
     Active Substance: EXENATIDE
     Dosage: UNK
     Route: 065
  3. BYDUREON BCISE [Suspect]
     Active Substance: EXENATIDE
     Dosage: UNK
     Route: 065
  4. BYDUREON BCISE [Suspect]
     Active Substance: EXENATIDE
     Dosage: UNK
  5. BYDUREON BCISE [Suspect]
     Active Substance: EXENATIDE
     Dosage: UNK
  6. BYDUREON BCISE [Suspect]
     Active Substance: EXENATIDE
     Dosage: UNK
  7. BYDUREON [Suspect]
     Active Substance: EXENATIDE
     Route: 065
  8. BYDUREON [Suspect]
     Active Substance: EXENATIDE
  9. BYDUREON [Suspect]
     Active Substance: EXENATIDE
     Route: 065
  10. BYDUREON [Suspect]
     Active Substance: EXENATIDE

REACTIONS (2)
  - Spinal stenosis [Unknown]
  - Weight decreased [Unknown]
